FAERS Safety Report 21558841 (Version 2)
Quarter: 2023Q1

REPORT INFORMATION
  Report Type: Spontaneous
  Country: BR (occurrence: BR)
  Receive Date: 20221107
  Receipt Date: 20230215
  Transmission Date: 20230417
  Serious: Yes (Death, Other)
  Sender: FDA-Public Use
  Company Number: BR-Melinta Therapeutics, LLC-BR-MLNT-22-00224

PATIENT
  Age: 70 Year
  Sex: Female

DRUGS (1)
  1. DELAFLOXACIN [Suspect]
     Active Substance: DELAFLOXACIN
     Indication: Staphylococcal infection
     Dosage: NOT PROVIDED
     Route: 042

REACTIONS (2)
  - Ill-defined disorder [Fatal]
  - Renal failure [Recovered/Resolved]
